FAERS Safety Report 16752296 (Version 7)
Quarter: 2019Q4

REPORT INFORMATION
  Report Type: Report from Study
  Country: JP (occurrence: JP)
  Receive Date: 20190828
  Receipt Date: 20191003
  Transmission Date: 20200122
  Serious: Yes (Hospitalization)
  Sender: FDA-Public Use
  Company Number: JP-EISAI MEDICAL RESEARCH-EC-2019-061125

PATIENT
  Age: 69 Year
  Sex: Male
  Weight: 63 kg

DRUGS (9)
  1. SENNOSIDE [Concomitant]
     Active Substance: SENNOSIDES
  2. MAGMITT [Concomitant]
     Active Substance: MAGNESIUM OXIDE
  3. METHYCOBAL [Concomitant]
     Active Substance: METHYLCOBALAMIN
  4. E7386 (TABLET) [Suspect]
     Active Substance: E-7386
     Route: 048
     Dates: start: 20190826
  5. CANDESARTAN. [Concomitant]
     Active Substance: CANDESARTAN
  6. LENVATINIB [Suspect]
     Active Substance: LENVATINIB
     Indication: HEPATOCELLULAR CARCINOMA
     Route: 048
     Dates: start: 20190731, end: 20190820
  7. LENVATINIB [Suspect]
     Active Substance: LENVATINIB
     Route: 048
     Dates: start: 20190826
  8. LYRICA [Concomitant]
     Active Substance: PREGABALIN
  9. E7386 (TABLET) [Suspect]
     Active Substance: E-7386
     Indication: HEPATOCELLULAR CARCINOMA
     Route: 048
     Dates: start: 20190725, end: 20190820

REACTIONS (1)
  - Disorientation [Recovered/Resolved]

NARRATIVE: CASE EVENT DATE: 20190820
